FAERS Safety Report 10219035 (Version 1)
Quarter: 2014Q2

REPORT INFORMATION
  Report Type: Report from Study
  Country: MX (occurrence: MX)
  Receive Date: 20140605
  Receipt Date: 20140605
  Transmission Date: 20141212
  Serious: Yes (Hospitalization, Other)
  Sender: FDA-Public Use
  Company Number: PHHY2014MX068877

PATIENT
  Age: 79 Year
  Sex: Female

DRUGS (3)
  1. EXFORGE [Suspect]
     Indication: HYPERTENSION
     Dosage: 2 TABLETS (160/5 MG) DAILY
     Route: 048
     Dates: start: 200901
  2. TENORETIC [Concomitant]
     Indication: HYPERTENSION
     Dosage: 1 UKN, DAILY
     Dates: start: 1974
  3. METFORMIN [Concomitant]
     Indication: DIABETES MELLITUS
     Dosage: UNK UKN, DAILY

REACTIONS (6)
  - Infarction [Recovered/Resolved]
  - Blood glucose increased [Recovered/Resolved]
  - Eye haemorrhage [Not Recovered/Not Resolved]
  - Retinal vascular occlusion [Unknown]
  - Hypothyroidism [Not Recovered/Not Resolved]
  - Depression [Not Recovered/Not Resolved]
